FAERS Safety Report 24711621 (Version 1)
Quarter: 2024Q4

REPORT INFORMATION
  Report Type: Spontaneous
  Country: US (occurrence: None)
  Receive Date: 20241207
  Receipt Date: 20241207
  Transmission Date: 20250114
  Serious: Yes (Hospitalization)
  Sender: Public
  Company Number: None

PATIENT
  Age: 43 Year
  Sex: Female

DRUGS (3)
  1. OPSUMIT [Suspect]
     Active Substance: MACITENTAN
     Indication: Pulmonary arterial hypertension
     Dosage: FREQUENCY : DAILY;?
     Route: 048
     Dates: start: 201504
  2. TADALAFIL [Concomitant]
     Active Substance: TADALAFIL
  3. C-TREPROSTINIL 0.2MG/M L [Concomitant]

REACTIONS (2)
  - Foot fracture [None]
  - Device related sepsis [None]

NARRATIVE: CASE EVENT DATE: 20241203
